FAERS Safety Report 13526973 (Version 2)
Quarter: 2017Q2

REPORT INFORMATION
  Report Type: Report from Study
  Country: US (occurrence: US)
  Receive Date: 20170509
  Receipt Date: 20170530
  Transmission Date: 20170830
  Serious: Yes (Hospitalization)
  Sender: FDA-Public Use
  Company Number: US-PFIZER INC-2017190905

PATIENT
  Age: 27 Year
  Sex: Female
  Weight: 56.2 kg

DRUGS (5)
  1. ADRIAMYCIN [Suspect]
     Active Substance: DOXORUBICIN HYDROCHLORIDE
     Indication: BREAST CANCER
     Dosage: 98 MG, EVERY 2 WEEKS FOR 4 DOSES
     Route: 042
     Dates: start: 20170221, end: 20170404
  2. IRINOTECAN HCL [Suspect]
     Active Substance: IRINOTECAN HYDROCHLORIDE
     Indication: BREAST CANCER
     Dosage: 40 MG, Q 2WEEKS
     Route: 042
     Dates: start: 20161116, end: 20170131
  3. CYTOXAN [Suspect]
     Active Substance: CYCLOPHOSPHAMIDE
     Indication: BREAST CANCER
     Dosage: 980 MG, EVERY 2 WEEKS FOR 4 DOSES
     Route: 042
     Dates: start: 20170221, end: 20170404
  4. EMLA [Concomitant]
     Active Substance: LIDOCAINE\PRILOCAINE
     Dosage: UNK
     Route: 061
     Dates: start: 20161114
  5. TALAZOPARIB [Suspect]
     Active Substance: TALAZOPARIB
     Indication: BREAST CANCER
     Dosage: 1 MG, QD
     Route: 048
     Dates: start: 20161116, end: 20170214

REACTIONS (1)
  - Pneumonia [Recovered/Resolved]

NARRATIVE: CASE EVENT DATE: 20170416
